FAERS Safety Report 6071924-7 (Version None)
Quarter: 2009Q1

REPORT INFORMATION
  Report Type: 
  Country: None (occurrence: None)
  Receive Date: 20090210
  Receipt Date: 20090205
  Transmission Date: 20090719
  Serious: Yes (Death, Hospitalization)
  Sender: FDA-Public Use
  Company Number: GR-ABBOTT-09P-066-0501771-00

PATIENT
  Age: 80 Year
  Sex: Female
  Weight: 62 kg

DRUGS (7)
  1. ZEMPLAR [Suspect]
     Indication: HYPERPARATHYROIDISM SECONDARY
     Route: 042
     Dates: start: 20070303, end: 20081204
  2. VENOFER [Concomitant]
     Indication: ANAEMIA
  3. INTELLECTA [Concomitant]
     Indication: VITAMIN SUPPLEMENTATION
     Route: 042
  4. FILICINE [Concomitant]
     Indication: RENAL FAILURE CHRONIC
  5. FILICINE [Concomitant]
     Indication: ANAEMIA
  6. SINTROM [Concomitant]
     Indication: ATRIAL FIBRILLATION
     Dosage: 1/4 PER DAY
     Route: 048
  7. ALUCAP [Concomitant]
     Indication: RENAL FAILURE CHRONIC
     Dosage: 2 THREE TIMES PER DAY
     Route: 048

REACTIONS (3)
  - ACUTE PULMONARY OEDEMA [None]
  - DYSPNOEA [None]
  - PLEURAL EFFUSION [None]
